FAERS Safety Report 25396114 (Version 1)
Quarter: 2025Q2

REPORT INFORMATION
  Report Type: Spontaneous
  Country: US (occurrence: None)
  Receive Date: 20250603
  Receipt Date: 20250603
  Transmission Date: 20250717
  Serious: Yes (Other)
  Sender: FDA-CTU
  Company Number: None

PATIENT
  Age: 40 Year
  Sex: Female
  Weight: 81 kg

DRUGS (2)
  1. ESCITALOPRAM [Suspect]
     Active Substance: ESCITALOPRAM OXALATE
     Dates: start: 20230410, end: 20250603
  2. LEVOTHYROXINE [Suspect]
     Active Substance: LEVOTHYROXINE

REACTIONS (10)
  - Hyperhidrosis [None]
  - Fatigue [None]
  - Arthralgia [None]
  - Fatigue [None]
  - Memory impairment [None]
  - Insomnia [None]
  - Abnormal dreams [None]
  - Weight increased [None]
  - Hypothyroidism [None]
  - Iron deficiency [None]

NARRATIVE: CASE EVENT DATE: 20240402
